FAERS Safety Report 4598259-3 (Version None)
Quarter: 2005Q1

REPORT INFORMATION
  Report Type: 
  Country: None (occurrence: None)
  Receive Date: 20050304
  Receipt Date: 20050302
  Transmission Date: 20050727
  Serious: Yes (Disabling)
  Sender: FDA-Public Use
  Company Number: US-GLAXOSMITHKLINE-A0547973A

PATIENT
  Age: 48 Year
  Sex: Male

DRUGS (3)
  1. PAXIL CR [Suspect]
     Dosage: 12.5MG PER DAY
     Route: 048
     Dates: start: 20050209
  2. CLONIDINE [Concomitant]
  3. KLONOPIN [Concomitant]

REACTIONS (1)
  - CHEST DISCOMFORT [None]
